FAERS Safety Report 23948581 (Version 1)
Quarter: 2024Q2

REPORT INFORMATION
  Report Type: Spontaneous
  Country: US (occurrence: US)
  Receive Date: 20240607
  Receipt Date: 20240607
  Transmission Date: 20240716
  Serious: No
  Sender: FDA-Public Use
  Company Number: US-GLAXOSMITHKLINE-US2024AMR068580

PATIENT
  Sex: Female

DRUGS (1)
  1. ZEJULA [Suspect]
     Active Substance: NIRAPARIB
     Indication: Ovarian cancer
     Dosage: 200 MG, QD
     Route: 048
     Dates: start: 20240330

REACTIONS (7)
  - White blood cell count decreased [Recovering/Resolving]
  - Brain fog [Recovering/Resolving]
  - Rash [Recovering/Resolving]
  - Eye pain [Recovering/Resolving]
  - Memory impairment [Recovering/Resolving]
  - Therapy interrupted [Unknown]
  - Product dose omission issue [Unknown]
